FAERS Safety Report 9597992 (Version 1)
Quarter: 2013Q4

REPORT INFORMATION
  Report Type: Spontaneous
  Country: US (occurrence: US)
  Receive Date: 20131004
  Receipt Date: 20131004
  Transmission Date: 20140711
  Serious: No
  Sender: FDA-Public Use
  Company Number: US-AMGEN-USASP2013022144

PATIENT
  Age: 59 Year
  Sex: Female

DRUGS (10)
  1. ENBREL [Suspect]
     Indication: PRODUCT USED FOR UNKNOWN INDICATION
     Dosage: 50 MG, QWK
     Route: 058
  2. NAPROXEN [Concomitant]
     Dosage: 500 MG, UNK
  3. ALIGN [Concomitant]
     Dosage: 4 MG, UNK
  4. MULTIVITAMINS, PLAIN [Concomitant]
     Dosage: UNK
  5. CALCIUM D                          /00944201/ [Concomitant]
     Dosage: UNK
  6. VITAMIN C                          /00008001/ [Concomitant]
     Dosage: 500 MG, UNK
  7. VITAMIN B [Concomitant]
     Dosage: UNK
  8. PAROXETINE [Concomitant]
     Dosage: 20 MG, UNK
  9. BISOPROLOL FUMARATE [Concomitant]
     Dosage: 10 MG, UNK
  10. AMLODIPINE/BENAZEPRIL [Concomitant]
     Dosage: 5-10 MG, UNK

REACTIONS (5)
  - Fatigue [Unknown]
  - Arthralgia [Unknown]
  - Pruritus [Unknown]
  - Erythema [Unknown]
  - Respiratory tract congestion [Unknown]
